FAERS Safety Report 6642687-9 (Version None)
Quarter: 2010Q1

REPORT INFORMATION
  Report Type: 
  Country: None (occurrence: None)
  Receive Date: 20100319
  Receipt Date: 20100310
  Transmission Date: 20100710
  Serious: Yes (Hospitalization, Other)
  Sender: FDA-Public Use
  Company Number: FR-ABBOTT-10P-056-0631460-00

PATIENT
  Age: 34 Year
  Sex: Female

DRUGS (13)
  1. SEVOFLURANE [Suspect]
     Indication: ANAESTHESIA
     Dosage: ONCE
     Route: 055
     Dates: start: 20091028, end: 20091028
  2. CELOCURINE [Suspect]
     Indication: SEDATION
     Route: 042
     Dates: start: 20091028, end: 20091028
  3. ETOMIDATE [Suspect]
     Indication: SEDATION
     Route: 042
     Dates: start: 20091028, end: 20091028
  4. RAPIFEN [Suspect]
     Indication: ANAESTHESIA
     Route: 042
     Dates: start: 20091028, end: 20091028
  5. NEXIUM [Concomitant]
     Indication: DRUG USE FOR UNKNOWN INDICATION
  6. PERFALGAN [Concomitant]
     Indication: DRUG USE FOR UNKNOWN INDICATION
  7. SOLU-MEDROL [Concomitant]
     Indication: DRUG USE FOR UNKNOWN INDICATION
  8. AUGMENTIN [Concomitant]
     Indication: DRUG USE FOR UNKNOWN INDICATION
  9. DUPHALAC [Concomitant]
     Indication: DRUG USE FOR UNKNOWN INDICATION
  10. AVLOCARDYL [Concomitant]
     Indication: DRUG USE FOR UNKNOWN INDICATION
  11. INSULIN [Concomitant]
     Indication: DRUG USE FOR UNKNOWN INDICATION
  12. LASILIX [Concomitant]
     Indication: DRUG USE FOR UNKNOWN INDICATION
     Route: 048
  13. ACUPAN [Concomitant]
     Indication: DRUG USE FOR UNKNOWN INDICATION

REACTIONS (6)
  - ANAPHYLACTIC SHOCK [None]
  - BRADYCARDIA [None]
  - BRONCHOSPASM [None]
  - EYELID OEDEMA [None]
  - RASH [None]
  - VENTRICULAR TACHYCARDIA [None]
